FAERS Safety Report 19479246 (Version 4)
Quarter: 2021Q3

REPORT INFORMATION
  Report Type: Report from Study
  Country: KR (occurrence: KR)
  Receive Date: 20210630
  Receipt Date: 20210727
  Transmission Date: 20211014
  Serious: Yes (Hospitalization)
  Sender: FDA-Public Use
  Company Number: KR-EISAI MEDICAL RESEARCH-EC-2021-095273

PATIENT
  Age: 50 Year
  Sex: Female
  Weight: 44.3 kg

DRUGS (15)
  1. LENVATINIB [Suspect]
     Active Substance: LENVATINIB
     Route: 048
     Dates: start: 20210621, end: 20210622
  2. LENVATINIB [Suspect]
     Active Substance: LENVATINIB
     Route: 048
     Dates: start: 20210701
  3. PANTOLINE [Concomitant]
     Active Substance: PANTOPRAZOLE SODIUM
     Dates: start: 20210607, end: 20210614
  4. PENIRAMIN [Concomitant]
     Dates: start: 20210614, end: 20210617
  5. NORZYME [Concomitant]
     Dates: start: 20210107, end: 20210617
  6. ALMAGEL?F [Concomitant]
     Dates: start: 20210607, end: 20210620
  7. LENVATINIB [Suspect]
     Active Substance: LENVATINIB
     Indication: COLORECTAL CANCER
     Route: 048
     Dates: start: 20210524, end: 20210605
  8. DUROGESIC [Concomitant]
     Active Substance: FENTANYL
     Dates: start: 20210607, end: 20210608
  9. PANTOLINE [Concomitant]
     Active Substance: PANTOPRAZOLE SODIUM
     Dates: start: 20210607, end: 20210607
  10. TYLENOL [Concomitant]
     Active Substance: ACETAMINOPHEN
     Dates: start: 20210128
  11. PEMBROLIZUMAB. [Suspect]
     Active Substance: PEMBROLIZUMAB
     Indication: COLORECTAL CANCER
     Route: 041
     Dates: start: 20210524, end: 20210524
  12. PEMBROLIZUMAB. [Suspect]
     Active Substance: PEMBROLIZUMAB
     Route: 041
     Dates: start: 20210705
  13. TIROPA [Concomitant]
     Active Substance: TIROPRAMIDE
     Dates: start: 20210607, end: 20210613
  14. AMMONIUM CHLORIDE;CHLORPHENAMINE MALEATE;DIHYDROCODEINE BITARTRATE;MET [Concomitant]
     Route: 065
     Dates: start: 20210616, end: 20210620
  15. FREAMINE III NOS [Concomitant]
     Active Substance: AMINO ACIDS
     Dates: start: 20210607, end: 20210607

REACTIONS (1)
  - Vomiting [Recovered/Resolved]

NARRATIVE: CASE EVENT DATE: 20210621
